FAERS Safety Report 4464371-2 (Version None)
Quarter: 2004Q4

REPORT INFORMATION
  Report Type: 
  Country: None (occurrence: None)
  Receive Date: 20041001
  Receipt Date: 20040923
  Transmission Date: 20050328
  Serious: Yes (Hospitalization)
  Sender: FDA-Public Use
  Company Number: IT-MERCK-0409ITA00029

PATIENT
  Age: 64 Year
  Sex: Female

DRUGS (2)
  1. ITRACONAZOLE [Suspect]
     Indication: FUNGAL SKIN INFECTION
     Route: 048
     Dates: start: 20040901, end: 20040907
  2. ZOCOR [Suspect]
     Indication: HYPERCHOLESTEROLAEMIA
     Route: 048
     Dates: start: 20010101, end: 20040903

REACTIONS (3)
  - CHROMATURIA [None]
  - MYALGIA [None]
  - PYREXIA [None]
